FAERS Safety Report 13417695 (Version 3)
Quarter: 2017Q2

REPORT INFORMATION
  Report Type: Report from Study
  Country: IT (occurrence: IT)
  Receive Date: 20170407
  Receipt Date: 20170424
  Transmission Date: 20170830
  Serious: Yes (Hospitalization, Other)
  Sender: FDA-Public Use
  Company Number: IT-MYLANLABS-2017M1021351

PATIENT

DRUGS (2)
  1. ALPRAZOLAM. [Suspect]
     Active Substance: ALPRAZOLAM
     Indication: PRODUCT USED FOR UNKNOWN INDICATION
     Dosage: UNK, TOTAL
     Route: 048
  2. LORAZEPAM. [Suspect]
     Active Substance: LORAZEPAM
     Indication: PRODUCT USED FOR UNKNOWN INDICATION
     Dosage: 10 DF, TOTAL
     Route: 048

REACTIONS (4)
  - Overdose [Unknown]
  - Sopor [Unknown]
  - Pneumonia aspiration [Unknown]
  - Drug use disorder [Unknown]

NARRATIVE: CASE EVENT DATE: 20170123
